FAERS Safety Report 9701005 (Version 2)
Quarter: 2013Q4

REPORT INFORMATION
  Report Type: Not Available
  Country: IT (occurrence: IT)
  Receive Date: 20131121
  Receipt Date: 20131216
  Transmission Date: 20140711
  Serious: Yes (Hospitalization)
  Sender: FDA-Public Use
  Company Number: IT-ASTELLAS-2013US012151

PATIENT
  Age: 65 Year
  Sex: Male

DRUGS (1)
  1. TARCEVA [Suspect]
     Indication: LUNG NEOPLASM MALIGNANT
     Dosage: 100 MG, UID/QD
     Route: 048
     Dates: start: 20130528, end: 20131104

REACTIONS (3)
  - Incorrect dose administered [Unknown]
  - Abdominal pain [Recovering/Resolving]
  - Back pain [Recovering/Resolving]
